FAERS Safety Report 21258451 (Version 1)
Quarter: 2022Q3

REPORT INFORMATION
  Report Type: Spontaneous
  Country: None (occurrence: US)
  Receive Date: 20220826
  Receipt Date: 20220826
  Transmission Date: 20221026
  Serious: No
  Sender: FDA-Public Use
  Company Number: US-ITALFARMACO SPA-2132261

PATIENT
  Age: 58 Year
  Sex: Female

DRUGS (5)
  1. TIGLUTIK [Suspect]
     Active Substance: RILUZOLE
     Indication: Amyotrophic lateral sclerosis
     Route: 048
     Dates: start: 20220210
  2. BUPROPION [Concomitant]
     Active Substance: BUPROPION
  3. ASPIRIN 81 (ACETYLSALICYLIC ACID) [Concomitant]
  4. VITAMIN B-12 (CYANOCOBALAMIN) [Concomitant]
  5. NEXIUM [Concomitant]
     Active Substance: ESOMEPRAZOLE MAGNESIUM

REACTIONS (2)
  - Constipation [Unknown]
  - Chromaturia [Unknown]

NARRATIVE: CASE EVENT DATE: 20220201
